FAERS Safety Report 12165770 (Version 3)
Quarter: 2017Q2

REPORT INFORMATION
  Report Type: Report from Study
  Country: AR (occurrence: AR)
  Receive Date: 20160309
  Receipt Date: 20170424
  Transmission Date: 20170830
  Serious: Yes (Other)
  Sender: FDA-Public Use
  Company Number: PHHY2015AR098082

PATIENT
  Age: 39 Year
  Sex: Female

DRUGS (3)
  1. GILENYA [Suspect]
     Active Substance: FINGOLIMOD HYDROCHLORIDE
     Dosage: 0.5 MG, QD
     Route: 065
     Dates: start: 201512
  2. GILENYA [Suspect]
     Active Substance: FINGOLIMOD HYDROCHLORIDE
     Indication: MULTIPLE SCLEROSIS
     Dosage: 0.5 MG, QD
     Route: 065
     Dates: start: 2013, end: 2015
  3. FINGOLIMOD [Suspect]
     Active Substance: FINGOLIMOD
     Indication: MULTIPLE SCLEROSIS
     Dosage: UNK
     Route: 065
     Dates: start: 201507

REACTIONS (5)
  - Headache [Recovering/Resolving]
  - Cervix haemorrhage uterine [Recovering/Resolving]
  - Hypertension [Recovered/Resolved]
  - Polymenorrhoea [Recovering/Resolving]
  - Urinary incontinence [Recovered/Resolved]

NARRATIVE: CASE EVENT DATE: 201511
